FAERS Safety Report 14907371 (Version 1)
Quarter: 2018Q2

REPORT INFORMATION
  Report Type: Report from Study
  Country: CA (occurrence: CA)
  Receive Date: 20180517
  Receipt Date: 20180517
  Transmission Date: 20180711
  Serious: Yes (Death, Hospitalization, Other)
  Sender: FDA-Public Use
  Company Number: CA-ROCHE-1804471

PATIENT
  Age: 73 Year
  Sex: Male

DRUGS (9)
  1. Q10 [Concomitant]
  2. GLICLAZIDE [Concomitant]
     Active Substance: GLICLAZIDE
  3. ACETYLSALICYLIC ACID [Concomitant]
     Active Substance: ASPIRIN
  4. ESBRIET [Suspect]
     Active Substance: PIRFENIDONE
     Indication: IDIOPATHIC PULMONARY FIBROSIS
     Route: 048
     Dates: start: 20160725
  5. METOPROLOL. [Concomitant]
     Active Substance: METOPROLOL
  6. PREDNISONE. [Concomitant]
     Active Substance: PREDNISONE
  7. ESBRIET [Suspect]
     Active Substance: PIRFENIDONE
     Route: 048
     Dates: start: 2016
  8. ROSUVASTATIN. [Concomitant]
     Active Substance: ROSUVASTATIN
  9. VENTOLIN [Concomitant]
     Active Substance: ALBUTEROL SULFATE

REACTIONS (16)
  - Pleurisy [Recovering/Resolving]
  - Blood glucose increased [Unknown]
  - Somnolence [Not Recovered/Not Resolved]
  - Heart rate increased [Unknown]
  - Hypoxia [Unknown]
  - Gastric disorder [Recovered/Resolved]
  - Dizziness [Unknown]
  - Oxygen saturation decreased [Unknown]
  - Death [Fatal]
  - Rash [Not Recovered/Not Resolved]
  - Fatigue [Not Recovered/Not Resolved]
  - Dyspnoea exertional [Unknown]
  - Pulmonary function test abnormal [Not Recovered/Not Resolved]
  - Decreased appetite [Not Recovered/Not Resolved]
  - Dyspnoea [Not Recovered/Not Resolved]
  - Back pain [Not Recovered/Not Resolved]

NARRATIVE: CASE EVENT DATE: 2016
